FAERS Safety Report 5897973-7 (Version None)
Quarter: 2008Q3

REPORT INFORMATION
  Report Type: 
  Country: None (occurrence: None)
  Receive Date: 20080925
  Receipt Date: 20080919
  Transmission Date: 20090109
  Serious: Yes (Life-Threatening, Hospitalization)
  Sender: FDA-Public Use
  Company Number: B0538260A

PATIENT
  Age: 45 Year
  Sex: Male
  Weight: 62 kg

DRUGS (5)
  1. KIVEXA [Suspect]
     Indication: HIV INFECTION
     Dosage: 1TAB PER DAY
     Route: 048
     Dates: start: 20051214, end: 20080916
  2. EFAVIRENZ [Concomitant]
     Indication: HIV INFECTION
     Route: 048
     Dates: start: 20010309
  3. CRESTOR [Concomitant]
     Dosage: 20MG PER DAY
     Route: 048
     Dates: start: 20080311
  4. PLAVIX [Concomitant]
     Dosage: 75MG PER DAY
     Route: 048
     Dates: start: 20080418
  5. EZETROL [Concomitant]
     Route: 048
     Dates: start: 20080418

REACTIONS (1)
  - MYOCARDIAL INFARCTION [None]
